FAERS Safety Report 4887179-2 (Version None)
Quarter: 2005Q4

REPORT INFORMATION
  Report Type: 
  Country: None (occurrence: None)
  Receive Date: 20051220
  Receipt Date: 20050406
  Transmission Date: 20060501
  Serious: Yes (Other)
  Sender: FDA-Public Use
  Company Number: HQWYE893608APR05

PATIENT
  Age: 64 Year
  Sex: Male
  Weight: 72.64 kg

DRUGS (5)
  1. EFFEXOR XR [Suspect]
     Indication: PAIN
     Dosage: 37.5 MG 1X PER 1 DAY, ORAL
     Route: 048
     Dates: start: 20031001
  2. EFFEXOR XR [Suspect]
     Indication: POLYMYALGIA
     Dosage: 37.5 MG 1X PER 1 DAY, ORAL
     Route: 048
     Dates: start: 20031001
  3. LANTUS [Concomitant]
  4. AVANDIA [Concomitant]
  5. ASPIRIN [Concomitant]

REACTIONS (7)
  - ASTHENIA [None]
  - DIZZINESS [None]
  - HEADACHE [None]
  - INFLUENZA LIKE ILLNESS [None]
  - MOOD ALTERED [None]
  - NAUSEA [None]
  - UNEVALUABLE EVENT [None]
